FAERS Safety Report 4480421-1 (Version None)
Quarter: 2004Q4

REPORT INFORMATION
  Report Type: 
  Country: None (occurrence: None)
  Receive Date: 20041018
  Receipt Date: 20041008
  Transmission Date: 20050328
  Serious: Yes (Hospitalization, Other)
  Sender: FDA-Public Use
  Company Number: 2004-10-0625

PATIENT
  Age: 3 Year
  Sex: Male

DRUGS (1)
  1. TEMODAR [Suspect]
     Indication: BRAIN NEOPLASM
     Dosage: 200 MG/DAY ORAL
     Route: 048

REACTIONS (8)
  - BONE MARROW DEPRESSION [None]
  - DERMATITIS ALLERGIC [None]
  - HYPOALBUMINAEMIA [None]
  - MEDICATION ERROR [None]
  - PLEURAL EFFUSION [None]
  - PYREXIA [None]
  - RASH ERYTHEMATOUS [None]
  - SKIN DESQUAMATION [None]
